FAERS Safety Report 24748604 (Version 1)
Quarter: 2024Q4

REPORT INFORMATION
  Report Type: Spontaneous
  Country: US (occurrence: None)
  Receive Date: 20241217
  Receipt Date: 20241217
  Transmission Date: 20250115
  Serious: Yes (Disabling)
  Sender: Public
  Company Number: None

PATIENT
  Sex: 0

DRUGS (1)
  1. EZETIMIBE [Suspect]
     Active Substance: EZETIMIBE
     Indication: Blood cholesterol increased
     Dosage: OTHER QUANTITY : 1 TABLET(S);?FREQUENCY : DAILY;?
     Route: 048
     Dates: start: 20241110, end: 20241118

REACTIONS (2)
  - Arthralgia [None]
  - Joint instability [None]

NARRATIVE: CASE EVENT DATE: 20241110
